FAERS Safety Report 8022624-5 (Version None)
Quarter: 2012Q1

REPORT INFORMATION
  Report Type: 
  Country: None (occurrence: None)
  Receive Date: 20120104
  Receipt Date: 20111226
  Transmission Date: 20120608
  Serious: Yes (Hospitalization)
  Sender: FDA-Public Use
  Company Number: JP-GLAXOSMITHKLINE-B0771968A

PATIENT
  Sex: Male

DRUGS (5)
  1. ALKERAN [Suspect]
     Indication: STEM CELL TRANSPLANT
     Dosage: 125MG PER DAY
     Route: 042
     Dates: start: 20111216, end: 20111217
  2. FLUDARA [Suspect]
     Indication: STEM CELL TRANSPLANT
     Dosage: 50MG PER DAY
     Route: 065
     Dates: start: 20111212, end: 20111217
  3. ONCOVIN [Suspect]
     Indication: PRODUCT USED FOR UNKNOWN INDICATION
     Dosage: 2MG PER DAY
     Route: 065
     Dates: start: 20111209, end: 20111209
  4. CYTARABINE [Suspect]
     Indication: STEM CELL TRANSPLANT
     Dosage: 3600MG PER DAY
     Route: 065
     Dates: start: 20111212, end: 20111215
  5. DOXORUBICIN HYDROCHLORIDE [Suspect]
     Indication: PRODUCT USED FOR UNKNOWN INDICATION
     Dosage: 90MG PER DAY
     Route: 065
     Dates: start: 20111209, end: 20111209

REACTIONS (1)
  - CYSTITIS HAEMORRHAGIC [None]
